FAERS Safety Report 14655822 (Version 1)
Quarter: 2018Q1

REPORT INFORMATION
  Report Type: Spontaneous
  Country: IT (occurrence: IT)
  Receive Date: 20180319
  Receipt Date: 20180319
  Transmission Date: 20180509
  Serious: Yes (Other)
  Sender: FDA-Public Use
  Company Number: PHHY2018IT047946

PATIENT
  Age: 56 Year
  Sex: Female

DRUGS (1)
  1. ACETYLSALICYLIC ACID [Suspect]
     Active Substance: ASPIRIN
     Indication: PYREXIA
     Dosage: 1 DF, UNK
     Route: 048
     Dates: start: 20180110, end: 20180110

REACTIONS (2)
  - Urticaria [Recovered/Resolved]
  - Pruritus [Recovered/Resolved]

NARRATIVE: CASE EVENT DATE: 20180111
